FAERS Safety Report 12330442 (Version 1)
Quarter: 2016Q2

REPORT INFORMATION
  Report Type: Spontaneous
  Country: US (occurrence: US)
  Receive Date: 20160504
  Receipt Date: 20160504
  Transmission Date: 20160815
  Serious: No
  Sender: FDA-Public Use
  Company Number: US-009507513-1604USA018420

PATIENT
  Sex: Female

DRUGS (1)
  1. DULERA [Suspect]
     Active Substance: FORMOTEROL FUMARATE DIHYDRATE\MOMETASONE FUROATE
     Dosage: 2 PUFFS (200 MCG) TWICE DAILY
     Route: 055
     Dates: start: 2014

REACTIONS (3)
  - Product container issue [Unknown]
  - Drug dose omission [Unknown]
  - No adverse event [Unknown]
